FAERS Safety Report 8610552-3 (Version None)
Quarter: 2012Q3

REPORT INFORMATION
  Report Type: 
  Country: None (occurrence: None)
  Receive Date: 20120822
  Receipt Date: 20120807
  Transmission Date: 20120928
  Serious: Yes (Hospitalization, Other)
  Sender: FDA-Public Use
  Company Number: US-JNJFOC-20120805291

PATIENT

DRUGS (45)
  1. RISPERIDONE [Suspect]
     Indication: PRODUCT USED FOR UNKNOWN INDICATION
     Route: 065
  2. ZETIA [Interacting]
     Indication: PRODUCT USED FOR UNKNOWN INDICATION
     Route: 065
  3. LEXAPRO [Interacting]
     Indication: PRODUCT USED FOR UNKNOWN INDICATION
     Route: 065
  4. PHENELZINE SULFATE [Interacting]
     Indication: PRODUCT USED FOR UNKNOWN INDICATION
     Route: 065
  5. CRESTOR [Interacting]
     Indication: PRODUCT USED FOR UNKNOWN INDICATION
     Route: 065
  6. SULFASALAZINE [Interacting]
     Indication: PRODUCT USED FOR UNKNOWN INDICATION
     Route: 065
  7. ZYPREXA [Interacting]
     Indication: PRODUCT USED FOR UNKNOWN INDICATION
     Route: 065
  8. ATIVAN [Interacting]
     Indication: PRODUCT USED FOR UNKNOWN INDICATION
     Route: 065
  9. COGENTIN [Interacting]
     Indication: PRODUCT USED FOR UNKNOWN INDICATION
     Route: 065
  10. DAPTOMYCIN [Interacting]
     Indication: PRODUCT USED FOR UNKNOWN INDICATION
     Route: 065
  11. ZIAGEN [Interacting]
     Indication: PRODUCT USED FOR UNKNOWN INDICATION
     Route: 065
  12. HALOPERIDOL LACTATE [Interacting]
     Indication: PRODUCT USED FOR UNKNOWN INDICATION
     Route: 065
  13. DEPAKOTE [Interacting]
     Indication: PRODUCT USED FOR UNKNOWN INDICATION
     Route: 065
  14. VALCYTE [Interacting]
     Indication: PRODUCT USED FOR UNKNOWN INDICATION
     Route: 065
  15. CLOFARABINE [Interacting]
     Indication: PRODUCT USED FOR UNKNOWN INDICATION
     Route: 065
  16. CYCLOPHOSPHAMIDE [Interacting]
     Indication: PRODUCT USED FOR UNKNOWN INDICATION
     Route: 065
  17. ARICEPT [Interacting]
     Indication: PRODUCT USED FOR UNKNOWN INDICATION
     Route: 065
  18. COLCHICINE [Interacting]
     Indication: PRODUCT USED FOR UNKNOWN INDICATION
     Route: 065
  19. UNASYN [Interacting]
     Indication: PRODUCT USED FOR UNKNOWN INDICATION
     Route: 065
  20. LIPITOR [Interacting]
     Indication: PRODUCT USED FOR UNKNOWN INDICATION
     Route: 065
  21. SEROQUEL [Interacting]
     Indication: PRODUCT USED FOR UNKNOWN INDICATION
     Route: 065
  22. ALDESLEUKIN [Interacting]
     Indication: PRODUCT USED FOR UNKNOWN INDICATION
     Route: 065
  23. HYDROCHLOROTHIAZIDE [Interacting]
     Indication: PRODUCT USED FOR UNKNOWN INDICATION
     Route: 065
  24. ABILIFY [Interacting]
     Indication: PRODUCT USED FOR UNKNOWN INDICATION
     Route: 065
  25. KLONOPIN [Interacting]
     Indication: PRODUCT USED FOR UNKNOWN INDICATION
     Route: 065
  26. PROGRAF [Interacting]
     Indication: PRODUCT USED FOR UNKNOWN INDICATION
     Route: 065
  27. SIROLIMUS [Interacting]
     Indication: PRODUCT USED FOR UNKNOWN INDICATION
     Route: 065
  28. NEURONTIN [Interacting]
     Indication: PRODUCT USED FOR UNKNOWN INDICATION
     Route: 065
  29. TEGRETOL [Interacting]
     Indication: PRODUCT USED FOR UNKNOWN INDICATION
     Route: 065
  30. FENTANYL [Interacting]
     Indication: ANALGESIC THERAPY
     Route: 062
  31. TRICOR [Interacting]
     Indication: PRODUCT USED FOR UNKNOWN INDICATION
     Route: 065
  32. THORAZINE [Interacting]
     Indication: PRODUCT USED FOR UNKNOWN INDICATION
     Route: 065
  33. CITALOPRAM HYDROBROMIDE [Interacting]
     Indication: PRODUCT USED FOR UNKNOWN INDICATION
     Route: 065
  34. PREDNISONE TAB [Interacting]
     Indication: PRODUCT USED FOR UNKNOWN INDICATION
     Route: 065
  35. ASPIRIN [Interacting]
     Indication: PRODUCT USED FOR UNKNOWN INDICATION
     Route: 065
  36. PENICILLIN [Interacting]
     Indication: PRODUCT USED FOR UNKNOWN INDICATION
     Route: 065
  37. ZOSYN [Interacting]
     Indication: PRODUCT USED FOR UNKNOWN INDICATION
     Route: 065
  38. BACTRIM [Interacting]
     Indication: PRODUCT USED FOR UNKNOWN INDICATION
     Route: 065
  39. DILANTIN [Interacting]
     Indication: PRODUCT USED FOR UNKNOWN INDICATION
     Route: 065
  40. AZATHIOPRINE SODIUM [Interacting]
     Indication: PRODUCT USED FOR UNKNOWN INDICATION
     Route: 065
  41. PLAVIX [Interacting]
     Indication: PRODUCT USED FOR UNKNOWN INDICATION
     Route: 065
  42. SIMVASTATIN [Interacting]
     Indication: PRODUCT USED FOR UNKNOWN INDICATION
     Route: 065
  43. GEODON [Interacting]
     Indication: PRODUCT USED FOR UNKNOWN INDICATION
     Route: 065
  44. KEFLEX [Interacting]
     Indication: PRODUCT USED FOR UNKNOWN INDICATION
     Route: 065
  45. CEFTRIAXONE [Interacting]
     Indication: PRODUCT USED FOR UNKNOWN INDICATION
     Route: 065

REACTIONS (3)
  - RHABDOMYOLYSIS [None]
  - DRUG INTERACTION [None]
  - AGRANULOCYTOSIS [None]
